FAERS Safety Report 7461271-0 (Version None)
Quarter: 2011Q2

REPORT INFORMATION
  Report Type: 
  Country: None (occurrence: None)
  Receive Date: 20110506
  Receipt Date: 20110427
  Transmission Date: 20111010
  Serious: Yes (Hospitalization, Other)
  Sender: FDA-Public Use
  Company Number: US-BIOGENIDEC-2009BI032318

PATIENT
  Age: 53 Year
  Sex: Female
  Weight: 65 kg

DRUGS (5)
  1. AVONEX [Suspect]
     Route: 030
     Dates: start: 20030801, end: 20110201
  2. UNKNOWN MEDICINE [Concomitant]
     Indication: HYPERTENSION
     Dates: start: 20000101
  3. AVONEX [Suspect]
     Indication: MULTIPLE SCLEROSIS
     Route: 030
     Dates: start: 20030801, end: 20110201
  4. AVONEX [Suspect]
     Route: 030
     Dates: start: 20011101, end: 20030701
  5. UNKNOWN MEDICINE [Concomitant]
     Indication: BLOOD CHOLESTEROL INCREASED
     Dates: start: 20000101

REACTIONS (15)
  - GASTRIC ULCER [None]
  - REFLUX OESOPHAGITIS [None]
  - VOMITING [None]
  - ARTERIAL OCCLUSIVE DISEASE [None]
  - ULTRASOUND SCAN [None]
  - WEIGHT INCREASED [None]
  - NAUSEA [None]
  - RECTAL POLYP [None]
  - GASTRITIS [None]
  - OESOPHAGITIS ULCERATIVE [None]
  - MALIGNANT MELANOMA [None]
  - PAIN IN EXTREMITY [None]
  - COLON CANCER METASTATIC [None]
  - HIATUS HERNIA [None]
  - POSITRON EMISSION TOMOGRAM [None]
